FAERS Safety Report 4754230-X (Version None)
Quarter: 2005Q3

REPORT INFORMATION
  Report Type: 
  Country: None (occurrence: None)
  Receive Date: 20050826
  Receipt Date: 20050826
  Transmission Date: 20060218
  Serious: No
  Sender: FDA-Public Use
  Company Number: None

PATIENT
  Age: 40 Year
  Sex: Male
  Weight: 124.7392 kg

DRUGS (1)
  1. DURAGESIC-100 [Suspect]
     Indication: POSTOPERATIVE CARE
     Dosage: TRANS DERMAL 75 MCG/HR 2 Q 3RD DAY
     Route: 062

REACTIONS (2)
  - DRUG EFFECT DECREASED [None]
  - PHARMACEUTICAL PRODUCT COMPLAINT [None]
